FAERS Safety Report 23147991 (Version 1)
Quarter: 2023Q4

REPORT INFORMATION
  Report Type: Spontaneous
  Country: FR (occurrence: FR)
  Receive Date: 20231106
  Receipt Date: 20231106
  Transmission Date: 20240110
  Serious: Yes (Hospitalization)
  Sender: FDA-Public Use
  Company Number: None

PATIENT
  Age: 22 Year
  Sex: Female
  Weight: 55 kg

DRUGS (2)
  1. VIMPAT [Suspect]
     Active Substance: LACOSAMIDE
     Indication: Epilepsy
     Dosage: 300 MILLIGRAM (2 X 150 MG TABLETS TAKEN AT A 30-MINUTE INTERVAL)
     Route: 048
     Dates: start: 20230927, end: 20230927
  2. LAMICTAL [Suspect]
     Active Substance: LAMOTRIGINE
     Indication: Epilepsy
     Dosage: 600 MILLIGRAM (2X 300 MG TABLETS TAKEN AT A 30-MINUTE INTERVAL)
     Route: 048
     Dates: start: 20230927, end: 20230927

REACTIONS (4)
  - Coma [Recovered/Resolved]
  - Vomiting [Recovered/Resolved]
  - Accidental overdose [Unknown]
  - Product administration error [Unknown]

NARRATIVE: CASE EVENT DATE: 20230927
